FAERS Safety Report 9779045 (Version 1)
Quarter: 2013Q4

REPORT INFORMATION
  Report Type: Spontaneous
  Country: US (occurrence: US)
  Receive Date: 20131223
  Receipt Date: 20131223
  Transmission Date: 20140711
  Serious: Yes (Hospitalization)
  Sender: FDA-Public Use
  Company Number: US-ENDO PHARMACEUTICALS INC.-OPCR20130376

PATIENT
  Sex: Male

DRUGS (2)
  1. OPANA ER 10MG [Suspect]
     Indication: CANCER PAIN
     Route: 048
     Dates: start: 201308, end: 201309
  2. OPANA ER 10MG [Suspect]
     Route: 048
     Dates: start: 201309

REACTIONS (3)
  - Pain [Unknown]
  - Weight decreased [Unknown]
  - Drug effect incomplete [Unknown]
